FAERS Safety Report 13376233 (Version 1)
Quarter: 2017Q1

REPORT INFORMATION
  Report Type: Spontaneous
  Country: US (occurrence: US)
  Receive Date: 20170328
  Receipt Date: 20170328
  Transmission Date: 20170429
  Serious: No
  Sender: FDA-Public Use
  Company Number: US-BAYER-2017-058512

PATIENT
  Age: 83 Year
  Sex: Male

DRUGS (4)
  1. VITAMIN D [COLECALCIFEROL] [Concomitant]
  2. RENO [Concomitant]
  3. MIRALAX [Suspect]
     Active Substance: POLYETHYLENE GLYCOL 3350
     Indication: GASTROINTESTINAL DISORDER
     Dosage: ONE CAPFUL EVERY EVENING
     Route: 048
     Dates: end: 20170327
  4. LANZUL [Concomitant]
     Active Substance: LANSOPRAZOLE

REACTIONS (2)
  - Product use issue [Unknown]
  - Off label use [Unknown]
